FAERS Safety Report 11797362 (Version 2)
Quarter: 2015Q4

REPORT INFORMATION
  Report Type: Report from Study
  Country: US (occurrence: US)
  Receive Date: 20151203
  Receipt Date: 20151229
  Transmission Date: 20160305
  Serious: Yes (Death, Hospitalization, Other)
  Sender: FDA-Public Use
  Company Number: US-GILEAD-2015-0185371

PATIENT
  Age: 59 Year
  Sex: Male

DRUGS (2)
  1. AMBRISENTAN [Suspect]
     Active Substance: AMBRISENTAN
     Indication: PRODUCT USED FOR UNKNOWN INDICATION
     Dosage: 10 MG, QD
     Route: 065
     Dates: start: 20141119
  2. TYVASO [Concomitant]
     Active Substance: TREPROSTINIL

REACTIONS (8)
  - Brain natriuretic peptide increased [Unknown]
  - Blood creatinine increased [Unknown]
  - Lethargy [Unknown]
  - Blood potassium increased [Unknown]
  - Pulmonary hypertension [Fatal]
  - Fluid overload [Unknown]
  - Vomiting [Unknown]
  - Haemoglobin decreased [Unknown]

NARRATIVE: CASE EVENT DATE: 20151124
